FAERS Safety Report 15290309 (Version 1)
Quarter: 2018Q3

REPORT INFORMATION
  Report Type: Spontaneous
  Country: US (occurrence: US)
  Receive Date: 20180817
  Receipt Date: 20180817
  Transmission Date: 20181010
  Serious: No
  Sender: FDA-Public Use
  Company Number: US-SA-2018SA217612

PATIENT
  Sex: Female

DRUGS (1)
  1. ASPERCREME WITH LIDOCAINE [Suspect]
     Active Substance: LIDOCAINE
     Route: 065

REACTIONS (1)
  - Drug ineffective [Unknown]
